FAERS Safety Report 6941056-1 (Version None)
Quarter: 2010Q3

REPORT INFORMATION
  Report Type: 
  Country: None (occurrence: None)
  Receive Date: 20100825
  Receipt Date: 20100818
  Transmission Date: 20110219
  Serious: Yes (Other)
  Sender: FDA-Public Use
  Company Number: US-BRACCO-005088

PATIENT
  Age: 81 Year
  Sex: Female
  Weight: 51 kg

DRUGS (4)
  1. ISOVUE-370 [Suspect]
     Indication: COMPUTERISED TOMOGRAM ABDOMEN
     Route: 042
     Dates: start: 20100805, end: 20100805
  2. ISOVUE-370 [Suspect]
     Indication: JAUNDICE
     Route: 042
     Dates: start: 20100805, end: 20100805
  3. ISOVUE-370 [Suspect]
     Indication: RECTAL HAEMORRHAGE
     Route: 042
     Dates: start: 20100805, end: 20100805
  4. GENTAMICIN [Suspect]
     Indication: PRODUCT USED FOR UNKNOWN INDICATION
     Route: 042
     Dates: start: 20100806

REACTIONS (1)
  - RENAL FAILURE ACUTE [None]
